FAERS Safety Report 16422090 (Version 1)
Quarter: 2019Q2

REPORT INFORMATION
  Report Type: Spontaneous
  Country: US (occurrence: US)
  Receive Date: 20190612
  Receipt Date: 20190612
  Transmission Date: 20190711
  Serious: Yes (Other)
  Sender: FDA-Public Use
  Company Number: US-GLAXOSMITHKLINE-US2019101680

PATIENT
  Age: 63 Year
  Sex: Female

DRUGS (3)
  1. BENLYSTA [Suspect]
     Active Substance: BELIMUMAB
     Indication: SYSTEMIC LUPUS ERYTHEMATOSUS
     Dosage: UNK UNK, CYC
     Route: 042
     Dates: start: 2014, end: 201811
  2. BACLOFEN. [Concomitant]
     Active Substance: BACLOFEN
     Indication: PRODUCT USED FOR UNKNOWN INDICATION
     Dosage: UNK
     Route: 065
  3. ZOFRAN [Concomitant]
     Active Substance: ONDANSETRON HYDROCHLORIDE
     Indication: PRODUCT USED FOR UNKNOWN INDICATION
     Dosage: UNK
     Route: 065

REACTIONS (15)
  - Seizure [Recovered/Resolved]
  - Hysterotomy [Recovered/Resolved]
  - Cervical dysplasia [Recovered/Resolved]
  - Hip arthroplasty [Recovered/Resolved]
  - Diagnostic aspiration [Recovered/Resolved]
  - Precancerous cells present [Recovered/Resolved]
  - Cervical polypectomy [Recovered/Resolved]
  - Feeling abnormal [Unknown]
  - Vulval operation [Recovered/Resolved]
  - Hysterectomy [Recovered/Resolved]
  - Nausea [Recovered/Resolved]
  - Wrong dose [Recovered/Resolved]
  - Lichen sclerosus [Recovered/Resolved]
  - Uterine polypectomy [Unknown]
  - Systemic lupus erythematosus [Unknown]

NARRATIVE: CASE EVENT DATE: 2018
